FAERS Safety Report 8537993-7 (Version None)
Quarter: 2012Q3

REPORT INFORMATION
  Report Type: 
  Country: None (occurrence: None)
  Receive Date: 20120725
  Receipt Date: 20120710
  Transmission Date: 20120928
  Serious: Yes (Hospitalization, Other)
  Sender: FDA-Public Use
  Company Number: US-009507513-1105USA01698

PATIENT

DRUGS (11)
  1. MAXALT [Concomitant]
     Indication: MIGRAINE
  2. FOSAMAX [Suspect]
     Indication: OSTEOPOROSIS
     Dosage: 70 MG, QW
     Route: 048
     Dates: start: 20020101, end: 20070101
  3. FOSAMAX [Suspect]
     Dosage: 70 MG, QW
     Route: 048
     Dates: start: 20081201
  4. ZOMETA [Concomitant]
     Indication: OSTEOPOROSIS
     Dates: start: 20091022
  5. TORADOL [Concomitant]
     Indication: MIGRAINE
  6. ASPIRIN [Concomitant]
     Dosage: 81 MG, QD
     Route: 048
  7. FOSAMAX PLUS D [Suspect]
     Indication: OSTEOPOROSIS
     Dosage: 70 MG, QW
     Route: 048
     Dates: end: 20070301
  8. KETOROLAC TROMETHAMINE [Concomitant]
     Indication: MIGRAINE
  9. FOSAMAX [Suspect]
     Dosage: 70 MG, QW
     Route: 048
  10. INDERAL LA [Concomitant]
     Indication: MIGRAINE
  11. FOSAMAX [Suspect]
     Dosage: UNK

REACTIONS (61)
  - HIATUS HERNIA [None]
  - BUNION [None]
  - STRESS FRACTURE [None]
  - OSTEOSCLEROSIS [None]
  - TENDONITIS [None]
  - MUSCULOSKELETAL CHEST PAIN [None]
  - GOUT [None]
  - NAUSEA [None]
  - LIMB INJURY [None]
  - NECK PAIN [None]
  - ARTHRALGIA [None]
  - ROTATOR CUFF SYNDROME [None]
  - DIARRHOEA [None]
  - DYSPEPSIA [None]
  - BLOOD DISORDER [None]
  - OSTEOARTHRITIS [None]
  - NODULE [None]
  - FEMUR FRACTURE [None]
  - URINE CALCIUM [None]
  - HIP FRACTURE [None]
  - BONE LESION [None]
  - DIVERTICULITIS [None]
  - VULVAL DISORDER [None]
  - IMPAIRED FASTING GLUCOSE [None]
  - BONE PAIN [None]
  - PELVIC PAIN [None]
  - COUGH [None]
  - EXOSTOSIS [None]
  - GINGIVAL DISORDER [None]
  - BACK INJURY [None]
  - HEADACHE [None]
  - BLEPHARITIS [None]
  - HYPERCHOLESTEROLAEMIA [None]
  - FATIGUE [None]
  - GASTROINTESTINAL HAEMORRHAGE [None]
  - THYROID DISORDER [None]
  - URINARY TRACT INFECTION [None]
  - HYPERTENSION [None]
  - ROAD TRAFFIC ACCIDENT [None]
  - MUSCULAR WEAKNESS [None]
  - ANAEMIA [None]
  - GASTRITIS [None]
  - SOFT TISSUE INJURY [None]
  - SCOLIOSIS [None]
  - RHEUMATOID ARTHRITIS [None]
  - FOOT DEFORMITY [None]
  - LIGAMENT SPRAIN [None]
  - CONJUNCTIVITIS ALLERGIC [None]
  - FALL [None]
  - BURSITIS [None]
  - JOINT INJURY [None]
  - FEMORAL NECK FRACTURE [None]
  - MYALGIA [None]
  - HYPERCALCIURIA [None]
  - PYREXIA [None]
  - TOOTH DISORDER [None]
  - DEPRESSION [None]
  - MASS [None]
  - RIB FRACTURE [None]
  - LIMB MALFORMATION [None]
  - CHEST PAIN [None]
